FAERS Safety Report 5165134-5 (Version None)
Quarter: 2006Q4

REPORT INFORMATION
  Report Type: 
  Country: None (occurrence: None)
  Receive Date: 20061127
  Receipt Date: 20061116
  Transmission Date: 20070319
  Serious: Yes (Hospitalization)
  Sender: FDA-Public Use
  Company Number: 2006-150610-NL

PATIENT
  Age: 35 Year
  Sex: Female

DRUGS (3)
  1. FOLLITROPIN BETA [Suspect]
     Dosage: 100 DF QD SUBCUTANEOUS
     Route: 058
     Dates: start: 20011108, end: 20020116
  2. CHORIONIC GONADORTOPIN INJ [Suspect]
     Dosage: SUBCUTANEOUS
     Route: 058
     Dates: start: 20011119, end: 20020116
  3. CLOMIPHENE CITRATE [Suspect]
     Dosage: ORAL
     Route: 048
     Dates: start: 20000601, end: 20010601

REACTIONS (3)
  - DRUG EXPOSURE BEFORE PREGNANCY [None]
  - OVARIAN EPITHELIAL CANCER [None]
  - PREGNANCY [None]
